FAERS Safety Report 25130912 (Version 1)
Quarter: 2025Q1

REPORT INFORMATION
  Report Type: Spontaneous
  Country: CA (occurrence: CA)
  Receive Date: 20250327
  Receipt Date: 20250327
  Transmission Date: 20250409
  Serious: Yes (Hospitalization, Other)
  Sender: MYLAN
  Company Number: CA-MYLANLABS-2025M1025804

PATIENT
  Age: 87 Year
  Sex: Female
  Weight: 50 kg

DRUGS (72)
  1. EPINEPHRINE [Suspect]
     Active Substance: EPINEPHRINE
     Indication: Product used for unknown indication
  2. EPINEPHRINE [Suspect]
     Active Substance: EPINEPHRINE
     Route: 065
  3. EPINEPHRINE [Suspect]
     Active Substance: EPINEPHRINE
     Route: 065
  4. EPINEPHRINE [Suspect]
     Active Substance: EPINEPHRINE
  5. ROPIVACAINE HYDROCHLORIDE [Suspect]
     Active Substance: ROPIVACAINE HYDROCHLORIDE
     Indication: Product used for unknown indication
  6. ROPIVACAINE HYDROCHLORIDE [Suspect]
     Active Substance: ROPIVACAINE HYDROCHLORIDE
     Route: 065
  7. ROPIVACAINE HYDROCHLORIDE [Suspect]
     Active Substance: ROPIVACAINE HYDROCHLORIDE
     Route: 065
  8. ROPIVACAINE HYDROCHLORIDE [Suspect]
     Active Substance: ROPIVACAINE HYDROCHLORIDE
  9. KETOROLAC [Suspect]
     Active Substance: KETOROLAC TROMETHAMINE
     Indication: Product used for unknown indication
  10. KETOROLAC [Suspect]
     Active Substance: KETOROLAC TROMETHAMINE
     Route: 065
  11. KETOROLAC [Suspect]
     Active Substance: KETOROLAC TROMETHAMINE
     Route: 065
  12. KETOROLAC [Suspect]
     Active Substance: KETOROLAC TROMETHAMINE
  13. ACETAMINOPHEN [Concomitant]
     Active Substance: ACETAMINOPHEN
  14. ACETAMINOPHEN [Concomitant]
     Active Substance: ACETAMINOPHEN
     Route: 065
  15. ACETAMINOPHEN [Concomitant]
     Active Substance: ACETAMINOPHEN
     Route: 065
  16. ACETAMINOPHEN [Concomitant]
     Active Substance: ACETAMINOPHEN
  17. ALUMINUM HYDROXIDE\MAGNESIUM HYDROXIDE [Concomitant]
     Active Substance: ALUMINUM HYDROXIDE\MAGNESIUM HYDROXIDE
     Dosage: 30 MILLILITER, Q4H (1 EVERY 4 HOURS)
  18. ALUMINUM HYDROXIDE\MAGNESIUM HYDROXIDE [Concomitant]
     Active Substance: ALUMINUM HYDROXIDE\MAGNESIUM HYDROXIDE
     Dosage: 30 MILLILITER, Q4H (1 EVERY 4 HOURS)
     Route: 065
  19. ALUMINUM HYDROXIDE\MAGNESIUM HYDROXIDE [Concomitant]
     Active Substance: ALUMINUM HYDROXIDE\MAGNESIUM HYDROXIDE
     Dosage: 30 MILLILITER, Q4H (1 EVERY 4 HOURS)
     Route: 065
  20. ALUMINUM HYDROXIDE\MAGNESIUM HYDROXIDE [Concomitant]
     Active Substance: ALUMINUM HYDROXIDE\MAGNESIUM HYDROXIDE
     Dosage: 30 MILLILITER, Q4H (1 EVERY 4 HOURS)
  21. ATORVASTATIN [Concomitant]
     Active Substance: ATORVASTATIN
     Dosage: 10 MILLIGRAM, QD (1 EVERY 1 DAYS)
  22. ATORVASTATIN [Concomitant]
     Active Substance: ATORVASTATIN
     Dosage: 10 MILLIGRAM, QD (1 EVERY 1 DAYS)
     Route: 048
  23. ATORVASTATIN [Concomitant]
     Active Substance: ATORVASTATIN
     Dosage: 10 MILLIGRAM, QD (1 EVERY 1 DAYS)
     Route: 048
  24. ATORVASTATIN [Concomitant]
     Active Substance: ATORVASTATIN
     Dosage: 10 MILLIGRAM, QD (1 EVERY 1 DAYS)
  25. BIMATOPROST [Concomitant]
     Active Substance: BIMATOPROST
     Dosage: 2 GTT DROPS, QD (1 EVERY 1 DAYS)
  26. BIMATOPROST [Concomitant]
     Active Substance: BIMATOPROST
     Dosage: 2 GTT DROPS, QD (1 EVERY 1 DAYS)
     Route: 065
  27. BIMATOPROST [Concomitant]
     Active Substance: BIMATOPROST
     Dosage: 2 GTT DROPS, QD (1 EVERY 1 DAYS)
     Route: 065
  28. BIMATOPROST [Concomitant]
     Active Substance: BIMATOPROST
     Dosage: 2 GTT DROPS, QD (1 EVERY 1 DAYS)
  29. CALCIUM [Concomitant]
     Active Substance: CALCIUM
     Dosage: 650 MILLIGRAM, QD (1 EVERY 1 DAYS)
  30. CALCIUM [Concomitant]
     Active Substance: CALCIUM
     Dosage: 650 MILLIGRAM, QD (1 EVERY 1 DAYS)
     Route: 065
  31. CALCIUM [Concomitant]
     Active Substance: CALCIUM
     Dosage: 650 MILLIGRAM, QD (1 EVERY 1 DAYS)
     Route: 065
  32. CALCIUM [Concomitant]
     Active Substance: CALCIUM
     Dosage: 650 MILLIGRAM, QD (1 EVERY 1 DAYS)
  33. RHAMNUS PURSHIANA BARK EXTRACT [Concomitant]
     Active Substance: RHAMNUS PURSHIANA BARK EXTRACT
     Dosage: 5 MILLILITER, QD (1 EVERY 1 DAYS)
  34. RHAMNUS PURSHIANA BARK EXTRACT [Concomitant]
     Active Substance: RHAMNUS PURSHIANA BARK EXTRACT
     Dosage: 5 MILLILITER, QD (1 EVERY 1 DAYS)
     Route: 065
  35. RHAMNUS PURSHIANA BARK EXTRACT [Concomitant]
     Active Substance: RHAMNUS PURSHIANA BARK EXTRACT
     Dosage: 5 MILLILITER, QD (1 EVERY 1 DAYS)
     Route: 065
  36. RHAMNUS PURSHIANA BARK EXTRACT [Concomitant]
     Active Substance: RHAMNUS PURSHIANA BARK EXTRACT
     Dosage: 5 MILLILITER, QD (1 EVERY 1 DAYS)
  37. CHOLECALCIFEROL [Concomitant]
     Active Substance: CHOLECALCIFEROL
     Dosage: 1000 UNITS, QD (1 EVERY 1 DAYS)
  38. CHOLECALCIFEROL [Concomitant]
     Active Substance: CHOLECALCIFEROL
     Dosage: 1000 UNITS, QD (1 EVERY 1 DAYS)
     Route: 048
  39. CHOLECALCIFEROL [Concomitant]
     Active Substance: CHOLECALCIFEROL
     Dosage: 1000 UNITS, QD (1 EVERY 1 DAYS)
     Route: 048
  40. CHOLECALCIFEROL [Concomitant]
     Active Substance: CHOLECALCIFEROL
     Dosage: 1000 UNITS, QD (1 EVERY 1 DAYS)
  41. CYANOCOBALAMIN [Concomitant]
     Active Substance: CYANOCOBALAMIN
     Dosage: 1000 UNITS, QD (1 EVERY 1 DAYS)
  42. CYANOCOBALAMIN [Concomitant]
     Active Substance: CYANOCOBALAMIN
     Dosage: 1000 UNITS, QD (1 EVERY 1 DAYS)
     Route: 048
  43. CYANOCOBALAMIN [Concomitant]
     Active Substance: CYANOCOBALAMIN
     Dosage: 1000 UNITS, QD (1 EVERY 1 DAYS)
     Route: 048
  44. CYANOCOBALAMIN [Concomitant]
     Active Substance: CYANOCOBALAMIN
     Dosage: 1000 UNITS, QD (1 EVERY 1 DAYS)
  45. HYDROCHLOROTHIAZIDE [Concomitant]
     Active Substance: HYDROCHLOROTHIAZIDE
     Dosage: 25 MILLIGRAM, QD (1 EVERY 1 DAYS)
  46. HYDROCHLOROTHIAZIDE [Concomitant]
     Active Substance: HYDROCHLOROTHIAZIDE
     Dosage: 25 MILLIGRAM, QD (1 EVERY 1 DAYS)
     Route: 048
  47. HYDROCHLOROTHIAZIDE [Concomitant]
     Active Substance: HYDROCHLOROTHIAZIDE
     Dosage: 25 MILLIGRAM, QD (1 EVERY 1 DAYS)
     Route: 048
  48. HYDROCHLOROTHIAZIDE [Concomitant]
     Active Substance: HYDROCHLOROTHIAZIDE
     Dosage: 25 MILLIGRAM, QD (1 EVERY 1 DAYS)
  49. MAGNESIUM [Concomitant]
     Active Substance: MAGNESIUM
  50. MAGNESIUM [Concomitant]
     Active Substance: MAGNESIUM
     Route: 065
  51. MAGNESIUM [Concomitant]
     Active Substance: MAGNESIUM
     Route: 065
  52. MAGNESIUM [Concomitant]
     Active Substance: MAGNESIUM
  53. METHOCARBAMOL [Concomitant]
     Active Substance: METHOCARBAMOL
     Dosage: 1 DOSAGE FORM, TID (3 EVERY 1 DAYS)
  54. METHOCARBAMOL [Concomitant]
     Active Substance: METHOCARBAMOL
     Dosage: 1 DOSAGE FORM, TID (3 EVERY 1 DAYS)
     Route: 065
  55. METHOCARBAMOL [Concomitant]
     Active Substance: METHOCARBAMOL
     Dosage: 1 DOSAGE FORM, TID (3 EVERY 1 DAYS)
     Route: 065
  56. METHOCARBAMOL [Concomitant]
     Active Substance: METHOCARBAMOL
     Dosage: 1 DOSAGE FORM, TID (3 EVERY 1 DAYS)
  57. SODIUM CHLORIDE [Concomitant]
     Active Substance: SODIUM CHLORIDE
     Dosage: 1000 MILLIGRAM, QD (1 EVERY 1 DAYS)
  58. SODIUM CHLORIDE [Concomitant]
     Active Substance: SODIUM CHLORIDE
     Dosage: 1000 MILLIGRAM, QD (1 EVERY 1 DAYS)
     Route: 065
  59. SODIUM CHLORIDE [Concomitant]
     Active Substance: SODIUM CHLORIDE
     Dosage: 1000 MILLIGRAM, QD (1 EVERY 1 DAYS)
     Route: 065
  60. SODIUM CHLORIDE [Concomitant]
     Active Substance: SODIUM CHLORIDE
     Dosage: 1000 MILLIGRAM, QD (1 EVERY 1 DAYS)
  61. UMECLIDINIUM BROMIDE [Concomitant]
     Active Substance: UMECLIDINIUM BROMIDE
     Dosage: 1 DOSAGE FORM, QD (1 EVERY 1 DAYS)
  62. UMECLIDINIUM BROMIDE [Concomitant]
     Active Substance: UMECLIDINIUM BROMIDE
     Dosage: 1 DOSAGE FORM, QD (1 EVERY 1 DAYS)
     Route: 048
  63. UMECLIDINIUM BROMIDE [Concomitant]
     Active Substance: UMECLIDINIUM BROMIDE
     Dosage: 1 DOSAGE FORM, QD (1 EVERY 1 DAYS)
     Route: 048
  64. UMECLIDINIUM BROMIDE [Concomitant]
     Active Substance: UMECLIDINIUM BROMIDE
     Dosage: 1 DOSAGE FORM, QD (1 EVERY 1 DAYS)
  65. VITAMIN C [Concomitant]
     Active Substance: ASCORBIC ACID
  66. VITAMIN C [Concomitant]
     Active Substance: ASCORBIC ACID
     Route: 065
  67. VITAMIN C [Concomitant]
     Active Substance: ASCORBIC ACID
     Route: 065
  68. VITAMIN C [Concomitant]
     Active Substance: ASCORBIC ACID
  69. ZINC [Concomitant]
     Active Substance: ZINC
  70. ZINC [Concomitant]
     Active Substance: ZINC
     Route: 065
  71. ZINC [Concomitant]
     Active Substance: ZINC
     Route: 065
  72. ZINC [Concomitant]
     Active Substance: ZINC

REACTIONS (4)
  - Endotracheal intubation [Recovering/Resolving]
  - Generalised tonic-clonic seizure [Recovering/Resolving]
  - Hypertension [Recovering/Resolving]
  - Metabolic acidosis [Recovering/Resolving]
